FAERS Safety Report 8605009-X (Version None)
Quarter: 2012Q3

REPORT INFORMATION
  Report Type: 
  Country: None (occurrence: None)
  Receive Date: 20120820
  Receipt Date: 20120809
  Transmission Date: 20120928
  Serious: Yes (Other)
  Sender: FDA-Public Use
  Company Number: CN-ASTRAZENECA-2012SE57249

PATIENT
  Age: 24880 Day
  Sex: Female
  Weight: 47 kg

DRUGS (3)
  1. PANTOPRAZOLE [Concomitant]
     Route: 041
  2. FELODIPINE [Suspect]
     Route: 048
  3. DIACEREIN [Concomitant]
     Route: 048

REACTIONS (3)
  - ERYTHEMA [None]
  - PRURITUS [None]
  - OEDEMA PERIPHERAL [None]
